FAERS Safety Report 9017260 (Version 1)
Quarter: 2013Q1

REPORT INFORMATION
  Report Type: Spontaneous
  Country: US (occurrence: US)
  Receive Date: 20130117
  Receipt Date: 20130117
  Transmission Date: 20140127
  Serious: No
  Sender: FDA-Public Use
  Company Number: US-TEVA-381196USA

PATIENT
  Age: 29 Year
  Sex: Female
  Weight: 81.27 kg

DRUGS (1)
  1. PLAN B ONE-STEP [Suspect]
     Indication: POST COITAL CONTRACEPTION
     Dosage: 1.5 MILLIGRAM DAILY;
     Route: 048
     Dates: start: 20130104, end: 20130104

REACTIONS (3)
  - Back pain [Not Recovered/Not Resolved]
  - Influenza [Not Recovered/Not Resolved]
  - Nausea [Not Recovered/Not Resolved]
